FAERS Safety Report 17292389 (Version 1)
Quarter: 2020Q1

REPORT INFORMATION
  Report Type: Spontaneous
  Country: ES (occurrence: ES)
  Receive Date: 20200121
  Receipt Date: 20200121
  Transmission Date: 20200409
  Serious: Yes (Hospitalization)
  Sender: FDA-Public Use
  Company Number: ES-BAYER-2019-230595

PATIENT
  Age: 50 Year
  Sex: Male
  Weight: 55 kg

DRUGS (2)
  1. RIFAMPICINA [Suspect]
     Active Substance: RIFAMPIN
     Indication: MYCOPLASMA INFECTION
     Dosage: 600 MG, QD
     Route: 048
     Dates: start: 20191010, end: 20191130
  2. ACTIRA [Suspect]
     Active Substance: MOXIFLOXACIN HYDROCHLORIDE
     Indication: MYCOPLASMA INFECTION
     Dosage: 400 MG, QD
     Route: 048
     Dates: start: 20191125, end: 20191130

REACTIONS (1)
  - Thrombocytopenia [Unknown]

NARRATIVE: CASE EVENT DATE: 20191129
